FAERS Safety Report 8586786 (Version 2)
Quarter: 2013Q4

REPORT INFORMATION
  Report Type: Spontaneous
  Country: TR (occurrence: TR)
  Receive Date: 20120530
  Receipt Date: 20131106
  Transmission Date: 20140711
  Serious: Yes (Other)
  Sender: FDA-Public Use
  Company Number: TR-AMGEN-TURSP2012032098

PATIENT
  Age: 28 Year
  Sex: Male

DRUGS (2)
  1. ENBREL [Suspect]
     Indication: ANKYLOSING SPONDYLITIS
     Dosage: 50 MG, WEEKLY
     Route: 058
     Dates: start: 2007, end: 2008
  2. ENBREL [Suspect]
     Dosage: 50 MG WEEKLY
     Route: 058
     Dates: start: 20110510, end: 20110510

REACTIONS (1)
  - Drug dependence [Not Recovered/Not Resolved]
